FAERS Safety Report 8966407 (Version 1)
Quarter: 2012Q4

REPORT INFORMATION
  Report Type: 
  Country: FR (occurrence: FR)
  Receive Date: 20121214
  Receipt Date: 20121214
  Transmission Date: 20130627
  Serious: Yes (Hospitalization)
  Sender: FDA-Public Use
  Company Number: FR-GLAXOSMITHKLINE-B0849919A

PATIENT
  Age: 40 None
  Sex: Female

DRUGS (4)
  1. LAMICTAL [Suspect]
     Indication: BIPOLAR DISORDER
     Dosage: 25MG Per day
     Route: 048
     Dates: start: 20120911, end: 20121011
  2. DEPAMIDE [Concomitant]
     Indication: PRODUCT USED FOR UNKNOWN INDICATION
     Route: 065
     Dates: start: 2011, end: 20121011
  3. FLOXYFRAL [Concomitant]
     Indication: PRODUCT USED FOR UNKNOWN INDICATION
     Route: 065
     Dates: start: 201206, end: 20121011
  4. BACLOFEN [Concomitant]
     Indication: ALCOHOLISM
     Route: 065
     Dates: start: 20121008, end: 20121011

REACTIONS (24)
  - Drug reaction with eosinophilia and systemic symptoms [Recovering/Resolving]
  - Influenza like illness [Recovering/Resolving]
  - Musculoskeletal stiffness [Recovering/Resolving]
  - Cough [Recovering/Resolving]
  - Urticaria [Recovering/Resolving]
  - Agitation [Recovering/Resolving]
  - Agitation [Recovering/Resolving]
  - Face oedema [Recovering/Resolving]
  - Arthralgia [Recovering/Resolving]
  - Myalgia [Recovering/Resolving]
  - Asthenia [Recovering/Resolving]
  - Pyrexia [Recovering/Resolving]
  - Leukopenia [Recovering/Resolving]
  - Rash morbilliform [Recovering/Resolving]
  - Inflammation [Recovering/Resolving]
  - Enanthema [Recovering/Resolving]
  - Oedema peripheral [Recovering/Resolving]
  - Headache [Recovering/Resolving]
  - Lymphadenopathy [Recovered/Resolved]
  - Dyspnoea exertional [Recovering/Resolving]
  - Eye pruritus [Recovering/Resolving]
  - Transaminases increased [Recovering/Resolving]
  - Eosinophilia [Recovering/Resolving]
  - N-terminal prohormone brain natriuretic peptide increased [Recovering/Resolving]
